FAERS Safety Report 17023504 (Version 3)
Quarter: 2019Q4

REPORT INFORMATION
  Report Type: Report from Study
  Country: CN (occurrence: CN)
  Receive Date: 20191112
  Receipt Date: 20191121
  Transmission Date: 20200122
  Serious: Yes (Hospitalization)
  Sender: FDA-Public Use
  Company Number: CN-AMGEN-CHNCT2019185583

PATIENT
  Age: 49 Year
  Sex: Female
  Weight: 73.6 kg

DRUGS (9)
  1. CINACALCET HCL [Suspect]
     Active Substance: CINACALCET HYDROCHLORIDE
     Indication: HYPERPARATHYROIDISM SECONDARY
     Dosage: UNK
     Route: 065
     Dates: start: 20190515
  2. LEVOCARNITINE. [Concomitant]
     Active Substance: LEVOCARNITINE
     Indication: CARDIAC FAILURE
     Dosage: 1 GRAM AND 2 GRAM ,QD
     Route: 042
     Dates: start: 20190612
  3. LOW MOLECULAR WEIGHT HEPARIN [Concomitant]
     Active Substance: UNSPECIFIED INGREDIENT
     Dosage: 2500-5000 UNK
     Route: 042
     Dates: start: 20190805, end: 20191104
  4. CEFTRIAXONE SODIUM. [Concomitant]
     Active Substance: CEFTRIAXONE SODIUM
     Dosage: 2 GRAM
     Route: 042
     Dates: start: 20191017, end: 20191019
  5. VITAMIN C [Concomitant]
     Active Substance: ASCORBIC ACID
     Dosage: 1 GRAM
     Route: 048
     Dates: start: 201903
  6. IRBESARTAN. [Concomitant]
     Active Substance: IRBESARTAN
     Indication: HYPERTENSION
     Dosage: 150 MILLIGRAM AND 1 TABLET , QD
     Route: 048
     Dates: start: 20190608
  7. SEVELAMER CARBONATE. [Concomitant]
     Active Substance: SEVELAMER CARBONATE
     Dosage: 0.8 GRAM
     Route: 048
     Dates: start: 2014
  8. CALCIUM ACETATE. [Concomitant]
     Active Substance: CALCIUM ACETATE
     Dosage: 0.667-1.334 GRAM
     Route: 048
     Dates: start: 20190624, end: 20191104
  9. RECOMBINANT HUMAN ERYTHROPOIETIN [Concomitant]
     Active Substance: ERYTHROPOIETIN
     Dosage: 5000-10000 UNK
     Dates: start: 20190406, end: 20191019

REACTIONS (1)
  - Ventricular extrasystoles [Recovered/Resolved]

NARRATIVE: CASE EVENT DATE: 20191105
